FAERS Safety Report 7085710-2 (Version None)
Quarter: 2010Q4

REPORT INFORMATION
  Report Type: 
  Country: None (occurrence: None)
  Receive Date: 20101027
  Receipt Date: 20101021
  Transmission Date: 20110411
  Serious: Yes (Hospitalization, Other)
  Sender: FDA-Public Use
  Company Number: 10252010-MH-A

PATIENT
  Age: 70 Year
  Sex: Male

DRUGS (6)
  1. HURRICAINE TOPICAL ANESTHETIC SPRAY - 20% BENZOCAINE BEUTLICH LP, PHAR [Suspect]
     Indication: ENDOSCOPY UPPER GASTROINTESTINAL TRACT
     Dosage: 3 SPRAYS
     Dates: start: 20091206
  2. VIBRAMYCIN [Concomitant]
  3. FLAGYL [Concomitant]
  4. AMOXICILLIN [Concomitant]
  5. ZANTAC [Concomitant]
  6. NEXIUM [Concomitant]

REACTIONS (2)
  - CONFUSIONAL STATE [None]
  - RESPIRATORY DISORDER [None]
